FAERS Safety Report 15698195 (Version 9)
Quarter: 2023Q1

REPORT INFORMATION
  Report Type: Spontaneous
  Country: US (occurrence: US)
  Receive Date: 20181207
  Receipt Date: 20230224
  Transmission Date: 20230418
  Serious: No
  Sender: FDA-Public Use
  Company Number: US-BIOGEN-2018BI00668187

PATIENT
  Sex: Female

DRUGS (12)
  1. TECFIDERA [Suspect]
     Active Substance: DIMETHYL FUMARATE
     Indication: Multiple sclerosis
     Route: 050
     Dates: start: 20131121, end: 20210407
  2. TECFIDERA [Suspect]
     Active Substance: DIMETHYL FUMARATE
     Dosage: TAKE 1 CAPSULE BY MOUTH TWICE DAILY
     Route: 050
     Dates: start: 2018
  3. MODAFINIL [Concomitant]
     Active Substance: MODAFINIL
     Route: 050
  4. MAGNESIUM SULFATE [Concomitant]
     Active Substance: MAGNESIUM SULFATE
     Route: 050
  5. TYLENOL PM EXTRA STRENGTH [Concomitant]
     Active Substance: ACETAMINOPHEN\DIPHENHYDRAMINE HYDROCHLORIDE
     Route: 050
  6. CALCIUM CARBONATE [Concomitant]
     Route: 050
  7. OMEGA 3 [Concomitant]
     Active Substance: CAPSAICIN
     Route: 050
  8. DIETARY SUPPLEMENT [Concomitant]
     Active Substance: DIETARY SUPPLEMENT
     Route: 050
  9. COENZYME Q10 [Concomitant]
     Active Substance: DIETARY SUPPLEMENT\UBIDECARENONE
     Dosage: MAXIMUM STRENGTH
     Route: 050
  10. GLUCOSAMINE [Concomitant]
     Active Substance: GLUCOSAMINE
     Route: 050
  11. ZINC [Concomitant]
     Active Substance: ZINC
     Route: 050
  12. HERBALS\TURMERIC [Concomitant]
     Active Substance: HERBALS\TURMERIC
     Route: 050

REACTIONS (15)
  - Drug ineffective [Unknown]
  - Musculoskeletal stiffness [Not Recovered/Not Resolved]
  - Central nervous system inflammation [Unknown]
  - Hemiparesis [Unknown]
  - Abdominal discomfort [Unknown]
  - Secondary progressive multiple sclerosis [Unknown]
  - Primary progressive multiple sclerosis [Recovered/Resolved]
  - Temperature intolerance [Recovered/Resolved]
  - Decreased immune responsiveness [Recovered/Resolved]
  - Hypoacusis [Recovered/Resolved]
  - Body temperature increased [Recovered/Resolved]
  - Gastrointestinal disorder [Recovered/Resolved]
  - Feeling hot [Not Recovered/Not Resolved]
  - Diarrhoea [Unknown]
  - Hot flush [Recovered/Resolved]
